FAERS Safety Report 7891096-3 (Version None)
Quarter: 2011Q4

REPORT INFORMATION
  Report Type: 
  Country: None (occurrence: None)
  Receive Date: 20111103
  Receipt Date: 20110729
  Transmission Date: 20120403
  Serious: Yes (Other)
  Sender: FDA-Public Use
  Company Number: US-AMGEN-USASP2011038644

PATIENT
  Sex: Female

DRUGS (19)
  1. SINGULAIR [Concomitant]
     Dosage: 10 MG, UNK
     Route: 048
  2. LASIX [Concomitant]
     Dosage: 20 MG, UNK
     Route: 048
  3. VERAPAMIL [Concomitant]
     Dosage: 240 MG, UNK
     Route: 048
  4. VESICARE [Concomitant]
     Dosage: 5 MG, UNK
     Route: 048
  5. POTASSIUM CHLORIDE [Concomitant]
     Dosage: 10 MEQ, UNK
     Route: 048
  6. ENBREL [Suspect]
     Indication: PRODUCT USED FOR UNKNOWN INDICATION
     Dosage: 50 MG, QWK
     Route: 058
  7. CLOBETASOL E [Concomitant]
     Dosage: 0.05 %, UNK
     Route: 061
  8. ALLOPURINOL [Concomitant]
     Dosage: 100 MG, UNK
     Route: 048
  9. BENADRYL [Concomitant]
     Dosage: 25 MG, UNK
     Route: 048
  10. TRAMADOL HCL [Concomitant]
     Dosage: 50 MG, UNK
     Route: 048
  11. DOXEPIN HCL [Concomitant]
     Dosage: 75 MG, UNK
     Route: 048
  12. DIOVAN [Concomitant]
     Dosage: 320 MG, UNK
     Route: 048
  13. MULTIVITAMIN                       /00097801/ [Concomitant]
     Route: 048
  14. TYLENOL-500 [Concomitant]
     Dosage: 650 MG, UNK
     Route: 048
  15. FISH OIL [Concomitant]
     Route: 048
  16. CYMBALTA [Concomitant]
     Dosage: 20 MG, UNK
     Route: 048
  17. METHOTREXATE [Concomitant]
     Dosage: 2.5 MG, UNK
     Route: 048
  18. FOLIC ACID [Concomitant]
     Dosage: 1 MG, UNK
     Route: 048
  19. COLCHICINE [Concomitant]
     Dosage: 0.6 MG, UNK
     Route: 048

REACTIONS (2)
  - SEPSIS [None]
  - PNEUMONIA LEGIONELLA [None]
